FAERS Safety Report 8049976-4 (Version None)
Quarter: 2012Q1

REPORT INFORMATION
  Report Type: 
  Country: None (occurrence: None)
  Receive Date: 20120117
  Receipt Date: 20120111
  Transmission Date: 20120608
  Serious: Yes (Hospitalization)
  Sender: FDA-Public Use
  Company Number: AU-PFIZER INC-2011301286

PATIENT
  Age: 25 Year
  Sex: Male

DRUGS (3)
  1. LEVOTHYROXINE SODIUM [Concomitant]
     Dosage: 150 UG, 1X/DAY
  2. SUTENT [Suspect]
     Indication: THYROID CANCER METASTATIC
     Dosage: 50 MG, UNK
  3. SUTENT [Suspect]
     Dosage: 37.5 MG, 1X/DAY FOUR WEEKS ON 2 WEEKS OFF
     Route: 048
     Dates: start: 20100227

REACTIONS (4)
  - VISION BLURRED [None]
  - SKIN REACTION [None]
  - HEADACHE [None]
  - NAUSEA [None]
